FAERS Safety Report 25985415 (Version 1)
Quarter: 2025Q4

REPORT INFORMATION
  Report Type: Spontaneous
  Country: EU (occurrence: EU)
  Receive Date: 20251031
  Receipt Date: 20251031
  Transmission Date: 20260119
  Serious: Yes (Death)
  Sender: TEVA
  Company Number: None

PATIENT
  Age: 53 Year
  Sex: Male
  Weight: 82 kg

DRUGS (10)
  1. PEMETREXED [Suspect]
     Active Substance: PEMETREXED
     Indication: Lung adenocarcinoma
     Dosage: TIME INTERVAL: CYCLICAL
     Route: 042
     Dates: start: 20250512, end: 20250718
  2. ENHERTU [Concomitant]
     Active Substance: FAM-TRASTUZUMAB DERUXTECAN-NXKI
     Indication: Lung adenocarcinoma
     Dosage: TIME INTERVAL: CYCLICAL
     Route: 042
     Dates: start: 20250828
  3. RYBREVANT [Suspect]
     Active Substance: AMIVANTAMAB-VMJW
     Indication: Lung adenocarcinoma
     Dosage: TIME INTERVAL: CYCLICAL: J1; (TO BE DILUTED)
     Route: 042
     Dates: start: 20250512, end: 20250512
  4. RYBREVANT [Suspect]
     Active Substance: AMIVANTAMAB-VMJW
     Indication: Lung adenocarcinoma
     Dosage: TIME INTERVAL: CYCLICAL: C2; (TO BE DILUTED)
     Route: 042
     Dates: start: 20250603, end: 20250603
  5. RYBREVANT [Suspect]
     Active Substance: AMIVANTAMAB-VMJW
     Indication: Lung adenocarcinoma
     Dosage: TIME INTERVAL: CYCLICAL: J2; (TO BE DILUTED)
     Route: 042
     Dates: start: 20250513, end: 20250513
  6. RYBREVANT [Suspect]
     Active Substance: AMIVANTAMAB-VMJW
     Indication: Lung adenocarcinoma
     Dosage: TIME INTERVAL: CYCLICAL: J8; (TO BE DILUTED)
     Route: 042
     Dates: start: 20250519, end: 20250519
  7. RYBREVANT [Suspect]
     Active Substance: AMIVANTAMAB-VMJW
     Indication: Lung adenocarcinoma
     Dosage: TIME INTERVAL: CYCLICAL: C4; (TO BE DILUTED)
     Route: 042
     Dates: start: 20250718, end: 20250718
  8. RYBREVANT [Suspect]
     Active Substance: AMIVANTAMAB-VMJW
     Indication: Lung adenocarcinoma
     Dosage: TIME INTERVAL: CYCLICAL: C3; (TO BE DILUTED)
     Route: 042
     Dates: start: 20250624, end: 20250624
  9. RYBREVANT [Suspect]
     Active Substance: AMIVANTAMAB-VMJW
     Indication: Lung adenocarcinoma
     Dosage: TIME INTERVAL: CYCLICAL: J15; (TO BE DILUTED)
     Route: 042
     Dates: start: 20250526, end: 20250526
  10. CARBOPLATIN [Suspect]
     Active Substance: CARBOPLATIN
     Indication: Lung adenocarcinoma
     Dosage: TIME INTERVAL: CYCLICAL
     Route: 042
     Dates: start: 20250512, end: 20250718

REACTIONS (1)
  - Interstitial lung disease [Fatal]

NARRATIVE: CASE EVENT DATE: 20250827
